FAERS Safety Report 6867329-9 (Version None)
Quarter: 2010Q3

REPORT INFORMATION
  Report Type: 
  Country: None (occurrence: None)
  Receive Date: 20100722
  Receipt Date: 20100714
  Transmission Date: 20110219
  Serious: Yes (Hospitalization)
  Sender: FDA-Public Use
  Company Number: FR-MERCK-1007FRA00059

PATIENT
  Age: 77 Year
  Sex: Male

DRUGS (5)
  1. PRINIVIL [Suspect]
     Indication: HYPERTENSION
     Route: 048
  2. METFORMIN HYDROCHLORIDE [Concomitant]
     Route: 048
     Dates: end: 20090822
  3. INSULIN GLARGINE [Suspect]
     Route: 058
     Dates: end: 20090301
  4. INSULIN GLARGINE [Suspect]
     Route: 058
     Dates: start: 20090301, end: 20090801
  5. INSULIN GLARGINE [Suspect]
     Route: 058
     Dates: start: 20090801

REACTIONS (4)
  - CONFUSIONAL STATE [None]
  - FALL [None]
  - HYPOGLYCAEMIA [None]
  - HYPOTHERMIA [None]
